FAERS Safety Report 9280189 (Version 4)
Quarter: 2013Q4

REPORT INFORMATION
  Report Type: Spontaneous
  Country: DE (occurrence: DE)
  Receive Date: 20130509
  Receipt Date: 20131118
  Transmission Date: 20140711
  Serious: Yes (Other)
  Sender: FDA-Public Use
  Company Number: DE-ROCHE-1222904

PATIENT
  Sex: Male

DRUGS (2)
  1. XOLAIR [Suspect]
     Indication: PRODUCT USED FOR UNKNOWN INDICATION
     Route: 058
     Dates: start: 201212, end: 201303
  2. XOLAIR [Suspect]
     Route: 058
     Dates: start: 201304, end: 201304

REACTIONS (2)
  - Serum sickness [Recovering/Resolving]
  - Antibody test [Unknown]
